FAERS Safety Report 12830214 (Version 1)
Quarter: 2016Q4

REPORT INFORMATION
  Report Type: Report from Study
  Country: US (occurrence: US)
  Receive Date: 20161007
  Receipt Date: 20161007
  Transmission Date: 20170207
  Serious: No
  Sender: FDA-Public Use
  Company Number: US-SA-2016SA158291

PATIENT
  Age: 50 Year
  Sex: Female
  Weight: 72.1 kg

DRUGS (6)
  1. PROVIGIL [Concomitant]
     Active Substance: MODAFINIL
  2. AMPYRA [Concomitant]
     Active Substance: DALFAMPRIDINE
  3. AUBAGIO [Suspect]
     Active Substance: TERIFLUNOMIDE
     Indication: MULTIPLE SCLEROSIS
     Route: 048
     Dates: start: 20160723, end: 20160820
  4. BACLOFEN. [Concomitant]
     Active Substance: BACLOFEN
  5. SOMA [Concomitant]
     Active Substance: CARISOPRODOL
  6. VALIUM [Concomitant]
     Active Substance: DIAZEPAM

REACTIONS (3)
  - Depressive symptom [Unknown]
  - White blood cell count decreased [Not Recovered/Not Resolved]
  - Pollakiuria [Unknown]

NARRATIVE: CASE EVENT DATE: 201608
